FAERS Safety Report 5815363-X (Version None)
Quarter: 2008Q3

REPORT INFORMATION
  Report Type: 
  Country: None (occurrence: None)
  Receive Date: 20080718
  Receipt Date: 20080708
  Transmission Date: 20090109
  Serious: Yes (Hospitalization, Other)
  Sender: FDA-Public Use
  Company Number: US-PFIZER INC-2008038202

PATIENT
  Age: 56 Year
  Sex: Male

DRUGS (14)
  1. SUTENT [Suspect]
     Indication: METASTATIC RENAL CELL CARCINOMA
     Dosage: DAILY DOSE:50MG-FREQ:DAILY
     Route: 048
     Dates: start: 20071022, end: 20080301
  2. ZOMETA [Concomitant]
     Dosage: FREQ:1/MONTH
  3. MIRALAX [Concomitant]
  4. NICOTINE [Concomitant]
  5. OMEPRAZOLE [Concomitant]
  6. CLINDAMYCIN [Concomitant]
     Dosage: FREQ:BID
     Route: 061
  7. TYLENOL [Concomitant]
  8. VICODIN [Concomitant]
  9. FENTANYL [Concomitant]
     Dosage: DAILY DOSE:100MG
  10. STOOL SOFTENER [Concomitant]
     Dosage: FREQ:BID
  11. REGLAN [Concomitant]
  12. MYLANTA [Concomitant]
     Dosage: FREQ:PNR
  13. PROTONIX [Concomitant]
  14. DILAUDID [Concomitant]

REACTIONS (8)
  - DISEASE PROGRESSION [None]
  - GASTROOESOPHAGEAL REFLUX DISEASE [None]
  - HAEMATURIA [None]
  - METASTATIC RENAL CELL CARCINOMA [None]
  - RASH [None]
  - SPINAL COMPRESSION FRACTURE [None]
  - THERAPEUTIC RESPONSE UNEXPECTED [None]
  - WOUND INFECTION [None]
